FAERS Safety Report 7587105-1 (Version None)
Quarter: 2011Q3

REPORT INFORMATION
  Report Type: 
  Country: None (occurrence: None)
  Receive Date: 20110701
  Receipt Date: 20110627
  Transmission Date: 20111222
  Serious: Yes (Death)
  Sender: FDA-Public Use
  Company Number: PHHY2011BD58000

PATIENT
  Age: 98 Year
  Sex: Female

DRUGS (2)
  1. ZOLEDRONIC ACID [Suspect]
     Indication: OSTEOPOROSIS
     Route: 042
     Dates: start: 20090513
  2. ZOLEDRONIC ACID [Suspect]
     Route: 042
     Dates: start: 20100609

REACTIONS (1)
  - DEATH [None]
